FAERS Safety Report 8701491 (Version 2)
Quarter: 2013Q4

REPORT INFORMATION
  Report Type: Spontaneous
  Country: US (occurrence: US)
  Receive Date: 20120802
  Receipt Date: 20131101
  Transmission Date: 20140711
  Serious: No
  Sender: FDA-Public Use
  Company Number: US-009507513-1207USA009956

PATIENT
  Sex: Male

DRUGS (8)
  1. ZOCOR [Suspect]
     Dosage: 30 MG, QD
     Route: 048
  2. LIPITOR [Suspect]
     Dosage: 10 MG, QD
     Route: 048
  3. ATORVASTATIN CALCIUM [Suspect]
  4. ASPIRIN [Concomitant]
  5. COMBIVENT [Concomitant]
  6. SINGULAIR [Concomitant]
  7. OMEGA-3 MARINE TRIGLYCERIDES [Concomitant]
  8. PHENYTOIN [Concomitant]

REACTIONS (1)
  - Blood cholesterol increased [Unknown]
